FAERS Safety Report 8486660-7 (Version None)
Quarter: 2012Q3

REPORT INFORMATION
  Report Type: 
  Country: None (occurrence: None)
  Receive Date: 20120703
  Receipt Date: 20120628
  Transmission Date: 20120928
  Serious: Yes (Life-Threatening)
  Sender: FDA-Public Use
  Company Number: US-ABBOTT-12P-163-0951439-00

PATIENT
  Sex: Male
  Weight: 86.26 kg

DRUGS (1)
  1. HUMIRA [Suspect]
     Indication: RHEUMATOID ARTHRITIS
     Dates: start: 20100101, end: 20111031

REACTIONS (5)
  - ASTHENIA [None]
  - DECREASED APPETITE [None]
  - HISTOPLASMOSIS [None]
  - RENAL CANCER [None]
  - OXYGEN SATURATION DECREASED [None]
